FAERS Safety Report 8201448 (Version 4)
Quarter: 2012Q4

REPORT INFORMATION
  Report Type: 
  Country: JP (occurrence: JP)
  Receive Date: 20111026
  Receipt Date: 20121204
  Transmission Date: 20130627
  Serious: Yes (Hospitalization, Other)
  Sender: FDA-Public Use
  Company Number: JP-SHIRE-ALL1-2011-04126

PATIENT
  Age: 14 Year
  Sex: Male
  Weight: 59 kg

DRUGS (1)
  1. IDURSULFASE [Suspect]
     Indication: MUCOPOLYSACCHARIDOSIS II
     Dosage: 24 mg, 1x/2wks
     Route: 041
     Dates: start: 20100720

REACTIONS (3)
  - Thrombocytopenia [Recovered/Resolved]
  - Laceration [Unknown]
  - Hyperbilirubinaemia [Not Recovered/Not Resolved]
